FAERS Safety Report 6816084-7 (Version None)
Quarter: 2010Q3

REPORT INFORMATION
  Report Type: 
  Country: None (occurrence: None)
  Receive Date: 20100705
  Receipt Date: 20100625
  Transmission Date: 20110219
  Serious: No
  Sender: FDA-Public Use
  Company Number: 2007BI018828

PATIENT
  Age: 52 Year
  Sex: Female

DRUGS (2)
  1. TYSABRI [Suspect]
     Indication: MULTIPLE SCLEROSIS
     Route: 042
     Dates: start: 20070803, end: 20081218
  2. TYSABRI [Suspect]
     Route: 042
     Dates: start: 20100526

REACTIONS (4)
  - DEPRESSED MOOD [None]
  - HERPES ZOSTER [None]
  - PAIN [None]
  - URTICARIA [None]
